FAERS Safety Report 14150271 (Version 1)
Quarter: 2017Q4

REPORT INFORMATION
  Report Type: Spontaneous
  Country: US (occurrence: US)
  Receive Date: 20171101
  Receipt Date: 20171101
  Transmission Date: 20180321
  Serious: No
  Sender: FDA-Public Use
  Company Number: US-NOVOPROD-548837

PATIENT
  Sex: Female

DRUGS (1)
  1. VAGIFEM [Suspect]
     Active Substance: ESTRADIOL
     Indication: PRODUCT USED FOR UNKNOWN INDICATION
     Dosage: 10 MCG QW
     Route: 067

REACTIONS (5)
  - Vulvovaginal swelling [Unknown]
  - Breast enlargement [Unknown]
  - Vulvovaginal discomfort [Unknown]
  - Nipple pain [Unknown]
  - Intentional product misuse [Unknown]
